FAERS Safety Report 17135143 (Version 2)
Quarter: 2019Q4

REPORT INFORMATION
  Report Type: Spontaneous
  Country: US (occurrence: US)
  Receive Date: 20191210
  Receipt Date: 20191218
  Transmission Date: 20200122
  Serious: Yes (Other)
  Sender: FDA-Public Use
  Company Number: US-PFIZER INC-2019528973

PATIENT
  Age: 17 Year
  Sex: Male
  Weight: 79.38 kg

DRUGS (1)
  1. NALBUPHINE HYDROCHLORIDE. [Suspect]
     Active Substance: NALBUPHINE HYDROCHLORIDE
     Indication: SEDATIVE THERAPY
     Dosage: 15 MG, ONE TIME (15MG INTRAVASCULARLY ONE TIME)
     Dates: start: 20191115, end: 20191115

REACTIONS (5)
  - Product use issue [Unknown]
  - Urticaria [Recovered/Resolved]
  - Off label use [Unknown]
  - Hypersensitivity [Recovered/Resolved]
  - Wheezing [Recovered/Resolved]

NARRATIVE: CASE EVENT DATE: 20191115
